FAERS Safety Report 12425458 (Version 1)
Quarter: 2016Q2

REPORT INFORMATION
  Report Type: Spontaneous
  Country: US (occurrence: US)
  Receive Date: 20160601
  Receipt Date: 20160601
  Transmission Date: 20160815
  Serious: Yes (Other)
  Sender: FDA-Public Use
  Company Number: US-ABBVIE-16K-163-1631965-00

PATIENT
  Sex: Female

DRUGS (4)
  1. HUMIRA [Suspect]
     Active Substance: ADALIMUMAB
     Indication: RHEUMATOID ARTHRITIS
     Route: 058
  2. XANAX [Suspect]
     Active Substance: ALPRAZOLAM
     Indication: PRODUCT USED FOR UNKNOWN INDICATION
     Route: 065
  3. ENBREL [Suspect]
     Active Substance: ETANERCEPT
     Indication: PRODUCT USED FOR UNKNOWN INDICATION
     Route: 065
  4. LYRICA [Suspect]
     Active Substance: PREGABALIN
     Indication: FIBROMYALGIA
     Dosage: AT BEDTIME FOR 30 DAYS
     Route: 048

REACTIONS (22)
  - Spinal pain [Unknown]
  - Raynaud^s phenomenon [Unknown]
  - Sjogren^s syndrome [Unknown]
  - Physical examination abnormal [Unknown]
  - Drug ineffective [Unknown]
  - Rash [Unknown]
  - Insomnia [Unknown]
  - Vitamin D deficiency [Unknown]
  - Dyspnoea exertional [Unknown]
  - Alopecia [Unknown]
  - Intervertebral disc degeneration [Unknown]
  - Joint range of motion decreased [Unknown]
  - Sciatica [Unknown]
  - Seizure [Unknown]
  - Fatigue [Unknown]
  - Abdominal distension [Unknown]
  - Arthralgia [Unknown]
  - Pain [Unknown]
  - Chest pain [Unknown]
  - Systemic lupus erythematosus [Unknown]
  - Joint swelling [Unknown]
  - Localised oedema [Unknown]
